FAERS Safety Report 22098046 (Version 1)
Quarter: 2023Q1

REPORT INFORMATION
  Report Type: Spontaneous
  Country: BE (occurrence: BE)
  Receive Date: 20230315
  Receipt Date: 20230315
  Transmission Date: 20230418
  Serious: Yes (Other)
  Sender: FDA-Public Use
  Company Number: None

PATIENT
  Sex: Male

DRUGS (1)
  1. LYRICA [Suspect]
     Active Substance: PREGABALIN
     Indication: Product used for unknown indication
     Dosage: PURCHASE OF 1400 CAPSULES OF 300 MG
     Route: 065

REACTIONS (2)
  - Prescription form tampering [Unknown]
  - Pharmaceutical nomadism [Unknown]
